FAERS Safety Report 15664613 (Version 1)
Quarter: 2018Q4

REPORT INFORMATION
  Report Type: Spontaneous
  Country: US (occurrence: US)
  Receive Date: 20181128
  Receipt Date: 20181128
  Transmission Date: 20190205
  Serious: No
  Sender: FDA-Public Use
  Company Number: US-KERYX BIOPHARMACEUTICALS INC.-2018US004004

PATIENT
  Age: 82 Year
  Sex: Female

DRUGS (14)
  1. LIPITOR [Concomitant]
     Active Substance: ATORVASTATIN CALCIUM
     Dosage: UNK
  2. DIOVAN [Concomitant]
     Active Substance: VALSARTAN
     Dosage: UNK
  3. ZANTAC [Concomitant]
     Active Substance: RANITIDINE HYDROCHLORIDE
     Dosage: UNK
  4. MIRCERA [Concomitant]
     Active Substance: METHOXY POLYETHYLENE GLYCOL-EPOETIN BETA
     Dosage: UNK
  5. ALLOPURINOL. [Concomitant]
     Active Substance: ALLOPURINOL
     Dosage: UNK
  6. RITALIN [Concomitant]
     Active Substance: METHYLPHENIDATE HYDROCHLORIDE
     Dosage: UNK
  7. RENVELA [Concomitant]
     Active Substance: SEVELAMER CARBONATE
     Dosage: UNK
  8. LEVOTHYROXINE. [Concomitant]
     Active Substance: LEVOTHYROXINE
     Dosage: UNK
  9. TYLENOL [Concomitant]
     Active Substance: ACETAMINOPHEN
     Dosage: UNK UNK, PRN
  10. VITAMIN E                          /00110501/ [Concomitant]
     Active Substance: TOCOPHEROL
     Dosage: UNK
  11. AURYXIA [Suspect]
     Active Substance: TETRAFERRIC TRICITRATE DECAHYDRATE
     Indication: PRODUCT USED FOR UNKNOWN INDICATION
     Dosage: UNK
     Route: 048
  12. ASPIRIN                            /00002701/ [Concomitant]
     Active Substance: ASPIRIN
     Dosage: UNK
  13. AMARYL [Concomitant]
     Active Substance: GLIMEPIRIDE
     Dosage: UNK
  14. VITAMIN D3 [Concomitant]
     Active Substance: CHOLECALCIFEROL
     Dosage: UNK

REACTIONS (1)
  - Lip swelling [Recovered/Resolved]
